FAERS Safety Report 25925578 (Version 1)
Quarter: 2025Q4

REPORT INFORMATION
  Report Type: Spontaneous
  Country: US (occurrence: None)
  Receive Date: 20251014
  Receipt Date: 20251014
  Transmission Date: 20260117
  Serious: No
  Sender: FDA-CTU
  Company Number: None

PATIENT
  Age: 59 Year
  Sex: Male

DRUGS (2)
  1. LENALIDOMIDE [Suspect]
     Active Substance: LENALIDOMIDE
     Indication: Diffuse large B-cell lymphoma
     Dosage: 10MG QD ORAL
     Route: 048
     Dates: start: 20250910, end: 20251013
  2. TAFASITAMAB [Suspect]
     Active Substance: TAFASITAMAB

REACTIONS (9)
  - Fatigue [None]
  - Pain [None]
  - Hypoaesthesia [None]
  - Hypoaesthesia [None]
  - Musculoskeletal stiffness [None]
  - Abdominal pain [None]
  - Dizziness [None]
  - Decreased appetite [None]
  - Weight decreased [None]

NARRATIVE: CASE EVENT DATE: 20251013
